FAERS Safety Report 8862526 (Version 2)
Quarter: 2012Q4

REPORT INFORMATION
  Report Type: Report from Study
  Country: US (occurrence: US)
  Receive Date: 20121026
  Receipt Date: 20121130
  Transmission Date: 20130627
  Serious: Yes (Hospitalization)
  Sender: FDA-Public Use
  Company Number: US-JNJFOC-20121013492

PATIENT
  Age: 14 Year
  Sex: Female
  Weight: 39.6 kg

DRUGS (13)
  1. REMICADE [Suspect]
     Indication: INFLAMMATORY BOWEL DISEASE
     Route: 042
     Dates: start: 20111115, end: 20120217
  2. PERCOCET [Concomitant]
  3. PREVACID [Concomitant]
  4. CALCIUM CARBONATE [Concomitant]
  5. ZYRTEC [Concomitant]
  6. FERROUS SULFATE [Concomitant]
  7. VSL3 [Concomitant]
  8. 5ASA [Concomitant]
  9. ANTIBIOTICS [Concomitant]
     Indication: INFLAMMATORY BOWEL DISEASE
  10. MULTIVITAMINS [Concomitant]
  11. OXYCODONE [Concomitant]
  12. MORPHINE [Concomitant]
  13. ELAVIL [Concomitant]

REACTIONS (1)
  - Ileus [Recovered/Resolved]
